FAERS Safety Report 7268615-3 (Version None)
Quarter: 2011Q1

REPORT INFORMATION
  Report Type: 
  Country: None (occurrence: None)
  Receive Date: 20110124
  Receipt Date: 20110113
  Transmission Date: 20110831
  Serious: Yes (Other)
  Sender: FDA-Public Use
  Company Number: JPI-P-013330

PATIENT
  Age: 68 Year
  Sex: Male
  Weight: 79.3795 kg

DRUGS (7)
  1. MELATONIN [Concomitant]
  2. XYREM [Suspect]
     Indication: POOR QUALITY SLEEP
     Dosage: ORAL, 7.5 GM (3.75 GM, 2 IN 1 D), ORAL, (3.75 GM FIRST DOSE/3 GM SECOND DOSE), ORAL
     Route: 048
     Dates: start: 20100101
  3. XYREM [Suspect]
     Indication: INSOMNIA
     Dosage: ORAL, 7.5 GM (3.75 GM, 2 IN 1 D), ORAL, (3.75 GM FIRST DOSE/3 GM SECOND DOSE), ORAL
     Route: 048
     Dates: start: 20100101
  4. XYREM [Suspect]
     Indication: POOR QUALITY SLEEP
     Dosage: ORAL, 7.5 GM (3.75 GM, 2 IN 1 D), ORAL, (3.75 GM FIRST DOSE/3 GM SECOND DOSE), ORAL
     Route: 048
     Dates: start: 20101119, end: 20100101
  5. XYREM [Suspect]
     Indication: INSOMNIA
     Dosage: ORAL, 7.5 GM (3.75 GM, 2 IN 1 D), ORAL, (3.75 GM FIRST DOSE/3 GM SECOND DOSE), ORAL
     Route: 048
     Dates: start: 20101119, end: 20100101
  6. XYREM [Suspect]
     Indication: POOR QUALITY SLEEP
     Dosage: ORAL, 7.5 GM (3.75 GM, 2 IN 1 D), ORAL, (3.75 GM FIRST DOSE/3 GM SECOND DOSE), ORAL
     Route: 048
     Dates: start: 20100101
  7. XYREM [Suspect]
     Indication: INSOMNIA
     Dosage: ORAL, 7.5 GM (3.75 GM, 2 IN 1 D), ORAL, (3.75 GM FIRST DOSE/3 GM SECOND DOSE), ORAL
     Route: 048
     Dates: start: 20100101

REACTIONS (4)
  - POOR QUALITY SLEEP [None]
  - FEELING ABNORMAL [None]
  - SOMNOLENCE [None]
  - INSOMNIA [None]
